FAERS Safety Report 6375533-1 (Version None)
Quarter: 2009Q3

REPORT INFORMATION
  Report Type: 
  Country: None (occurrence: None)
  Receive Date: 20090924
  Receipt Date: 20090915
  Transmission Date: 20100115
  Serious: Yes (Other)
  Sender: FDA-Public Use
  Company Number: US-ELI_LILLY_AND_COMPANY-US200904002179

PATIENT
  Sex: Female
  Weight: 68.481 kg

DRUGS (2)
  1. FORTEO [Suspect]
     Indication: OSTEOPOROSIS
     Dosage: UNK, DAILY (1/D)
     Dates: start: 20090301
  2. FORTEO [Suspect]
     Dosage: UNK, EACH EVENING
     Dates: start: 20090301

REACTIONS (3)
  - DIZZINESS [None]
  - MALAISE [None]
  - SYNCOPE [None]
